FAERS Safety Report 11646501 (Version 1)
Quarter: 2015Q4

REPORT INFORMATION
  Report Type: Spontaneous
  Country: US (occurrence: US)
  Receive Date: 20151020
  Receipt Date: 20151020
  Transmission Date: 20160304
  Serious: No
  Sender: FDA-Public Use
  Company Number: US-ROCHE-1623847

PATIENT
  Sex: Female

DRUGS (6)
  1. CITALOPRAM [Concomitant]
     Active Substance: CITALOPRAM HYDROBROMIDE
  2. ALENDRONATE [Concomitant]
     Active Substance: ALENDRONATE SODIUM
  3. CEPHALEXIN. [Concomitant]
     Active Substance: CEPHALEXIN
  4. PREDNISONE. [Concomitant]
     Active Substance: PREDNISONE
  5. QVAR [Concomitant]
     Active Substance: BECLOMETHASONE DIPROPIONATE
  6. ESBRIET [Suspect]
     Active Substance: PIRFENIDONE
     Indication: INTERSTITIAL LUNG DISEASE
     Route: 048
     Dates: start: 20150406

REACTIONS (2)
  - Sunburn [Recovered/Resolved]
  - Abdominal pain upper [Not Recovered/Not Resolved]
